FAERS Safety Report 20969137 (Version 2)
Quarter: 2022Q2

REPORT INFORMATION
  Report Type: Spontaneous
  Country: VN (occurrence: VN)
  Receive Date: 20220616
  Receipt Date: 20220620
  Transmission Date: 20220721
  Serious: Yes (Hospitalization, Other)
  Sender: FDA-Public Use
  Company Number: VN-PFIZER INC-202200837776

PATIENT
  Age: 44 Month
  Sex: Female
  Weight: 21 kg

DRUGS (3)
  1. UNASYN [Suspect]
     Active Substance: AMPICILLIN SODIUM\SULBACTAM SODIUM
     Indication: Pneumonia
     Dosage: 1.5 G, 2 TIMES/DAY
     Route: 042
     Dates: start: 20220607, end: 20220607
  2. ZENSALBU [Concomitant]
     Dosage: UNK
     Dates: start: 20220607
  3. BUDESONIDE [Concomitant]
     Active Substance: BUDESONIDE
     Dosage: UNK
     Dates: start: 20220607

REACTIONS (1)
  - Anaphylactic shock [Unknown]

NARRATIVE: CASE EVENT DATE: 20220607
